FAERS Safety Report 19768717 (Version 1)
Quarter: 2021Q3

REPORT INFORMATION
  Report Type: Spontaneous
  Country: US (occurrence: US)
  Receive Date: 20210831
  Receipt Date: 20210831
  Transmission Date: 20211014
  Serious: Yes (Other)
  Sender: FDA-Public Use
  Company Number: None

PATIENT
  Age: 61 Year
  Sex: Male
  Weight: 105.75 kg

DRUGS (1)
  1. ALEVEX [Suspect]
     Active Substance: CAMPHOR (SYNTHETIC)\MENTHOL
     Indication: TENDONITIS
     Route: 061
     Dates: start: 20210605, end: 20210611

REACTIONS (6)
  - Product complaint [None]
  - Skin discolouration [None]
  - Skin fissures [None]
  - Skin reaction [None]
  - Dry skin [None]
  - Skin injury [None]

NARRATIVE: CASE EVENT DATE: 20210611
